FAERS Safety Report 9034686 (Version 1)
Quarter: 2013Q1

REPORT INFORMATION
  Report Type: Spontaneous
  Country: DE (occurrence: None)
  Receive Date: 20130115
  Receipt Date: 20130115
  Transmission Date: 20140127
  Serious: Yes (Other)
  Sender: FDA-Public Use
  Company Number: GER/GER/13/0027366

PATIENT
  Sex: Female

DRUGS (1)
  1. SERTRALINE (SERTRALINE) (SERTRALINE) [Suspect]
     Indication: DEPRESSION

REACTIONS (15)
  - Premature rupture of membranes [None]
  - Caesarean section [None]
  - Maternal drugs affecting foetus [None]
  - Exposure during breast feeding [None]
  - Neonatal respiratory distress syndrome [None]
  - Hyperthermia [None]
  - Hypertonia [None]
  - Chills [None]
  - Myoclonus [None]
  - Tremor [None]
  - Irritability [None]
  - Crying [None]
  - Frequent bowel movements [None]
  - Poor sucking reflex [None]
  - Hypotonia [None]
